FAERS Safety Report 15407807 (Version 4)
Quarter: 2018Q4

REPORT INFORMATION
  Report Type: Spontaneous
  Country: BE (occurrence: BE)
  Receive Date: 20180920
  Receipt Date: 20181203
  Transmission Date: 20190204
  Serious: Yes (Death, Other)
  Sender: FDA-Public Use
  Company Number: BE-BRISTOL-MYERS SQUIBB COMPANY-BMS-2018-086471

PATIENT
  Sex: Female
  Weight: 47 kg

DRUGS (9)
  1. NIVOLUMAB [Suspect]
     Active Substance: NIVOLUMAB
     Indication: SMALL CELL LUNG CANCER
     Dosage: 3 MG/KG, UNK
     Route: 065
     Dates: start: 20180410
  2. MEDROL [Concomitant]
     Active Substance: METHYLPREDNISOLONE
     Indication: CHRONIC OBSTRUCTIVE PULMONARY DISEASE
     Dosage: 3 MG, UNK
     Route: 048
     Dates: start: 201803
  3. ASAFLOW [Concomitant]
     Active Substance: ASPIRIN
     Indication: ACUTE MYOCARDIAL INFARCTION
     Dosage: 80 MG, UNK
     Route: 048
     Dates: start: 201701
  4. INNOHEP [Concomitant]
     Active Substance: TINZAPARIN SODIUM
     Indication: ACUTE MYOCARDIAL INFARCTION
     Route: 065
  5. PANTOMED                           /01263204/ [Concomitant]
     Active Substance: PANTOPRAZOLE SODIUM
     Indication: PRODUCT USED FOR UNKNOWN INDICATION
     Dosage: 40 MG, UNK
     Route: 048
  6. CORDARONE [Concomitant]
     Active Substance: AMIODARONE HYDROCHLORIDE
     Indication: VENTRICULAR FIBRILLATION
     Dosage: 100 MG, UNK
     Route: 048
     Dates: start: 201701
  7. CLOPIDOGREL [Concomitant]
     Active Substance: CLOPIDOGREL BISULFATE
     Indication: ANGIOPATHY
     Route: 065
  8. INNOHEP [Concomitant]
     Active Substance: TINZAPARIN SODIUM
     Indication: VENTRICULAR FIBRILLATION
     Dosage: 5 MG, UNK
     Route: 048
     Dates: start: 201701
  9. CLOPIDOGREL [Concomitant]
     Active Substance: CLOPIDOGREL BISULFATE
     Indication: ACUTE MYOCARDIAL INFARCTION
     Dosage: 15 MG, UNK
     Route: 048
     Dates: start: 201701

REACTIONS (6)
  - Liver function test increased [Unknown]
  - Pancreatitis [Fatal]
  - Malignant neoplasm progression [Unknown]
  - Metastases to pancreas [Unknown]
  - Multiple organ dysfunction syndrome [Fatal]
  - Product use in unapproved indication [Unknown]
